FAERS Safety Report 10555172 (Version 1)
Quarter: 2014Q4

REPORT INFORMATION
  Report Type: Spontaneous
  Country: US (occurrence: US)
  Receive Date: 20141030
  Receipt Date: 20141030
  Transmission Date: 20150529
  Serious: No
  Sender: FDA-Public Use
  Company Number: US-CUBIST PHARMACEUTICALS, INC.-2014CBST000636

PATIENT

DRUGS (5)
  1. CUBICIN [Suspect]
     Active Substance: DAPTOMYCIN
     Indication: DEVICE RELATED INFECTION
     Dosage: 570 MG, QD
     Route: 042
     Dates: start: 20140115, end: 20140225
  2. CUBICIN [Suspect]
     Active Substance: DAPTOMYCIN
     Indication: STAPHYLOCOCCAL INFECTION
  3. CUBICIN [Suspect]
     Active Substance: DAPTOMYCIN
     Indication: DRUG ADMINISTERED TO PATIENT OF INAPPROPRIATE AGE
  4. CUBICIN [Suspect]
     Active Substance: DAPTOMYCIN
     Indication: OFF LABEL USE
  5. CUBICIN [Suspect]
     Active Substance: DAPTOMYCIN
     Indication: OSTEOMYELITIS
     Dosage: 5.9 MG/KG, QD
     Route: 042
     Dates: start: 20140115, end: 20140225

REACTIONS (1)
  - Drug administered to patient of inappropriate age [Unknown]

NARRATIVE: CASE EVENT DATE: 20140115
